FAERS Safety Report 16329323 (Version 2)
Quarter: 2019Q2

REPORT INFORMATION
  Report Type: Spontaneous
  Country: US (occurrence: US)
  Receive Date: 20190520
  Receipt Date: 20190611
  Transmission Date: 20190711
  Serious: No
  Sender: FDA-Public Use
  Company Number: US-LUPIN PHARMACEUTICALS INC.-2019-01917

PATIENT
  Sex: Female

DRUGS (2)
  1. QUETIAPINE FUMARATE EXTENDED-RELEASE TABLETS [Suspect]
     Active Substance: QUETIAPINE FUMARATE
     Dosage: 50 MILLIGRAM, UNK (DECREASED)
     Route: 065
  2. QUETIAPINE FUMARATE EXTENDED-RELEASE TABLETS [Suspect]
     Active Substance: QUETIAPINE FUMARATE
     Indication: PRODUCT USED FOR UNKNOWN INDICATION
     Dosage: 100 MILLIGRAM, UNK
     Route: 065

REACTIONS (2)
  - Hypoacusis [Unknown]
  - White blood cell count decreased [Unknown]
